FAERS Safety Report 14049599 (Version 3)
Quarter: 2018Q1

REPORT INFORMATION
  Report Type: Report from Study
  Country: US (occurrence: US)
  Receive Date: 20171005
  Receipt Date: 20180131
  Transmission Date: 20180508
  Serious: Yes (Death, Hospitalization, Other)
  Sender: FDA-Public Use
  Company Number: US-GILEAD-2017-0296522

PATIENT
  Sex: Male

DRUGS (10)
  1. DIGOXIN. [Concomitant]
     Active Substance: DIGOXIN
  2. LASIX [Concomitant]
     Active Substance: FUROSEMIDE
  3. RANOLAZINE. [Suspect]
     Active Substance: RANOLAZINE
     Indication: VENTRICULAR ARRHYTHMIA
     Dosage: UNK
     Route: 065
  4. LISINOPRIL. [Concomitant]
     Active Substance: LISINOPRIL
  5. THEOPHYLLINE [Concomitant]
     Active Substance: THEOPHYLLINE ANHYDROUS
  6. COREG [Concomitant]
     Active Substance: CARVEDILOL
     Dosage: 6.25 MG, BID
  7. ALLOPURINOL. [Concomitant]
     Active Substance: ALLOPURINOL
  8. NEXIUM [Concomitant]
     Active Substance: ESOMEPRAZOLE MAGNESIUM
  9. MEDROL [Concomitant]
     Active Substance: METHYLPREDNISOLONE
  10. WARFARIN [Concomitant]
     Active Substance: WARFARIN

REACTIONS (3)
  - Cardiac failure [Fatal]
  - Dyspnoea [Fatal]
  - Sudden cardiac death [Fatal]
